FAERS Safety Report 15195295 (Version 1)
Quarter: 2018Q3

REPORT INFORMATION
  Report Type: Report from Study
  Country: BD (occurrence: BD)
  Receive Date: 20180725
  Receipt Date: 20180725
  Transmission Date: 20181010
  Serious: Yes (Death, Hospitalization, Other)
  Sender: FDA-Public Use
  Company Number: BD-SA-2018SA188361

PATIENT
  Age: 70 Year
  Sex: Female
  Weight: 72 kg

DRUGS (1)
  1. INSULIN GLARGINE [Suspect]
     Active Substance: INSULIN GLARGINE
     Dosage: UNK
     Route: 058
     Dates: start: 20110712

REACTIONS (4)
  - Multiple organ dysfunction syndrome [Fatal]
  - Cardiac disorder [Unknown]
  - Chronic kidney disease [Unknown]
  - Hospitalisation [Unknown]
